FAERS Safety Report 18921973 (Version 1)
Quarter: 2021Q1

REPORT INFORMATION
  Report Type: Spontaneous
  Country: US (occurrence: US)
  Receive Date: 20210220
  Receipt Date: 20210220
  Transmission Date: 20210420
  Serious: Yes (Hospitalization)
  Sender: FDA-Public Use
  Company Number: None

PATIENT
  Age: 64 Year
  Sex: Female
  Weight: 68.95 kg

DRUGS (2)
  1. ALIMTA [Suspect]
     Active Substance: PEMETREXED DISODIUM
     Dates: end: 20210204
  2. CISPLATIN. [Suspect]
     Active Substance: CISPLATIN
     Dates: end: 20210204

REACTIONS (1)
  - Iliac artery stenosis [None]

NARRATIVE: CASE EVENT DATE: 20210209
